FAERS Safety Report 12117657 (Version 1)
Quarter: 2016Q1

REPORT INFORMATION
  Report Type: Report from Study
  Country: GB (occurrence: GB)
  Receive Date: 20160226
  Receipt Date: 20160226
  Transmission Date: 20160526
  Serious: Yes (Hospitalization)
  Sender: FDA-Public Use
  Company Number: GB-ROCHE-1716544

PATIENT
  Age: 55 Year
  Sex: Female
  Weight: 59 kg

DRUGS (3)
  1. HERCEPTIN [Suspect]
     Active Substance: TRASTUZUMAB
     Indication: BREAST CANCER STAGE IV
     Dosage: 8/6 MG/KG?TOTAL NUMBER OF INJECTION RECEIVED 7
     Route: 042
     Dates: start: 201506, end: 201512
  2. LETROZOLE. [Suspect]
     Active Substance: LETROZOLE
     Indication: BREAST CANCER STAGE IV
     Route: 048
     Dates: start: 201512, end: 201602
  3. PACLITAXEL. [Suspect]
     Active Substance: PACLITAXEL
     Indication: BREAST CANCER STAGE IV
     Dosage: TOTAL NUMBER OF INJECTION RECEIVED 15
     Route: 042
     Dates: start: 201506, end: 201512

REACTIONS (1)
  - General physical health deterioration [Unknown]
